FAERS Safety Report 8238354-0 (Version None)
Quarter: 2012Q1

REPORT INFORMATION
  Report Type: 
  Country: None (occurrence: None)
  Receive Date: 20120323
  Receipt Date: 20120313
  Transmission Date: 20120608
  Serious: Yes (Hospitalization)
  Sender: FDA-Public Use
  Company Number: DSA_44827_2011

PATIENT
  Age: 58 Year
  Sex: Male

DRUGS (11)
  1. CLOPIDOGREL BISULFATE [Suspect]
     Indication: CORONARY ARTERY DISEASE
     Dosage: (DF)
  2. CLOPIDOGREL BISULFATE [Suspect]
     Indication: ANGINA UNSTABLE
     Dosage: (DF)
  3. HEPARIN SODIUM [Concomitant]
  4. DILTIAZEM HYDROCHLORIDE [Suspect]
     Indication: PRODUCT USED FOR UNKNOWN INDICATION
     Dosage: (DF)
  5. HYDROXYCHLOROQUINE SULFATE [Concomitant]
  6. ISOSORBIDE DINITRATE [Concomitant]
  7. ATORVASTATIN [Suspect]
     Indication: ANGINA UNSTABLE
     Dosage: (20 MG QD)
  8. ATORVASTATIN [Suspect]
     Indication: CORONARY ARTERY DISEASE
     Dosage: (20 MG QD)
  9. PREDNISOLONE [Suspect]
     Indication: SYSTEMIC LUPUS ERYTHEMATOSUS
     Dosage: (20 MG QD)
  10. ASPIRIN [Concomitant]
  11. METOPROLOL TARTRATE [Concomitant]

REACTIONS (12)
  - HEPATOTOXICITY [None]
  - ALANINE AMINOTRANSFERASE INCREASED [None]
  - CORONARY ARTERY DISEASE [None]
  - DRUG INTERACTION [None]
  - APHTHOUS STOMATITIS [None]
  - SYSTEMIC LUPUS ERYTHEMATOSUS [None]
  - MYOGLOBIN BLOOD INCREASED [None]
  - RAYNAUD'S PHENOMENON [None]
  - LEUKOPENIA [None]
  - ELECTROCARDIOGRAM ST SEGMENT DEPRESSION [None]
  - ELECTROCARDIOGRAM T WAVE INVERSION [None]
  - ANGINA UNSTABLE [None]
